FAERS Safety Report 5816854-8 (Version None)
Quarter: 2008Q3

REPORT INFORMATION
  Report Type: 
  Country: None (occurrence: None)
  Receive Date: 20080721
  Receipt Date: 20080714
  Transmission Date: 20090109
  Serious: Yes (Hospitalization)
  Sender: FDA-Public Use
  Company Number: US-ASTRAZENECA-2008UW14081

PATIENT
  Age: 55 Year
  Sex: Male

DRUGS (1)
  1. CRESTOR [Suspect]
     Dosage: 20 MG FOR 2 DAYS
     Route: 048

REACTIONS (4)
  - ABASIA [None]
  - DIZZINESS [None]
  - GAIT DISTURBANCE [None]
  - HYPOAESTHESIA [None]
